FAERS Safety Report 5212209-8 (Version None)
Quarter: 2006Q4

REPORT INFORMATION
  Report Type: 
  Country: None (occurrence: None)
  Receive Date: 20061115
  Receipt Date: 20060719
  Transmission Date: 20070319
  Serious: No
  Sender: FDA-Public Use
  Company Number: 200613820BWH

PATIENT
  Age: 67 Year
  Sex: Female
  Weight: 58.9676 kg

DRUGS (2)
  1. NEXAVAR [Suspect]
     Indication: LUNG NEOPLASM MALIGNANT
     Dosage: 400 MG, BID, ORAL; SEE IMAGE
     Route: 048
     Dates: start: 20060525, end: 20060526
  2. OTHER CHEMOTHERAPY IV (NOS) [Concomitant]

REACTIONS (5)
  - DECREASED APPETITE [None]
  - DIARRHOEA [None]
  - FATIGUE [None]
  - MALAISE [None]
  - NAUSEA [None]
